FAERS Safety Report 7107470-9 (Version None)
Quarter: 2010Q4

REPORT INFORMATION
  Report Type: 
  Country: None (occurrence: None)
  Receive Date: 20101112
  Receipt Date: 20101031
  Transmission Date: 20110411
  Serious: Yes (Hospitalization)
  Sender: FDA-Public Use
  Company Number: 2010110010

PATIENT
  Age: 59 Year
  Sex: Male

DRUGS (6)
  1. TORSEMIDE [Suspect]
     Indication: SUICIDE ATTEMPT
     Dosage: 320 MG (10 MG, INTAKE NOT ASSURED),ORAL
     Route: 048
     Dates: start: 20101031, end: 20101031
  2. ASPIRIN [Suspect]
     Indication: COMPLETED SUICIDE
     Dosage: 2500 MG (100 MG,INTAKE NOT ASSURED),ORAL
     Route: 048
     Dates: start: 20101031, end: 20101031
  3. CARVEDILOL [Suspect]
     Indication: SUICIDE ATTEMPT
     Dosage: 1000 MG (25 MG,INTAKE NOT ASSURED),ORAL
     Route: 048
     Dates: start: 20101031, end: 20101031
  4. PROCORALAN 5 (IVABRADIN) [Suspect]
     Indication: SUICIDE ATTEMPT
     Dosage: 70 MG (5 MG, INTAKE NOT ASSURED),ORAL
     Route: 048
     Dates: start: 20101031, end: 20101031
  5. EZETIMIBE/SIMVASTATIN [Suspect]
     Indication: SUICIDE ATTEMPT
     Dosage: 10 DOSAGE FORMS (1 DOSAGE FORM,INTAKE NOT ASSURED),ORAL
     Route: 048
     Dates: start: 20101031, end: 20101031
  6. ALLOPURINOL [Suspect]
     Indication: SUICIDE ATTEMPT
     Dosage: 12,000 MG (300 MG,INTAKE NOT ASSURED),ORAL
     Route: 048
     Dates: start: 20101031, end: 20101031

REACTIONS (3)
  - ALCOHOL USE [None]
  - MULTIPLE DRUG OVERDOSE INTENTIONAL [None]
  - SUICIDE ATTEMPT [None]
